FAERS Safety Report 25120954 (Version 1)
Quarter: 2025Q1

REPORT INFORMATION
  Report Type: Report from Study
  Country: JP (occurrence: JP)
  Receive Date: 20250326
  Receipt Date: 20250326
  Transmission Date: 20250408
  Serious: Yes (Hospitalization, Other)
  Sender: TAKEDA
  Company Number: JP-TAKEDA-2022TJP062483

PATIENT
  Sex: Male
  Weight: 56.5 kg

DRUGS (7)
  1. TEDUGLUTIDE [Suspect]
     Active Substance: TEDUGLUTIDE
     Indication: Short-bowel syndrome
     Dates: start: 20220308, end: 20220422
  2. TEDUGLUTIDE [Suspect]
     Active Substance: TEDUGLUTIDE
     Dates: start: 20220511, end: 20220623
  3. TEDUGLUTIDE [Suspect]
     Active Substance: TEDUGLUTIDE
  4. TEDUGLUTIDE [Suspect]
     Active Substance: TEDUGLUTIDE
  5. IMURAN [Concomitant]
     Active Substance: AZATHIOPRINE
     Indication: Crohn^s disease
     Dosage: 50 MILLIGRAM, QD
  6. LOXOPROFEN SODIUM [Concomitant]
     Active Substance: LOXOPROFEN SODIUM
  7. CALONAL [Concomitant]
     Active Substance: ACETAMINOPHEN
     Indication: Crohn^s disease

REACTIONS (3)
  - Bile duct stone [Recovered/Resolved]
  - Abdominal pain [Recovering/Resolving]
  - Stoma complication [Not Recovered/Not Resolved]

NARRATIVE: CASE EVENT DATE: 20220317
